FAERS Safety Report 6133939-X (Version None)
Quarter: 2009Q1

REPORT INFORMATION
  Report Type: 
  Country: None (occurrence: None)
  Receive Date: 20090326
  Receipt Date: 20090323
  Transmission Date: 20090719
  Serious: Yes (Death)
  Sender: FDA-Public Use
  Company Number: PE-GENENTECH-268723

PATIENT
  Age: 77 Year
  Sex: Male
  Weight: 39 kg

DRUGS (3)
  1. BEVACIZUMAB [Suspect]
     Indication: GASTRIC CANCER
     Dosage: 7.5 MG/KG, Q3W
     Route: 042
     Dates: start: 20080726
  2. CAPECITABINE [Suspect]
     Indication: GASTRIC CANCER
     Dosage: 2000 MG/M2, BID
     Route: 048
     Dates: start: 20080726
  3. CISPLATIN [Suspect]
     Indication: GASTRIC CANCER
     Dosage: 80 MG/M2, Q3W
     Route: 042
     Dates: start: 20080726

REACTIONS (1)
  - DEATH [None]
